FAERS Safety Report 14845345 (Version 1)
Quarter: 2018Q2

REPORT INFORMATION
  Report Type: Spontaneous
  Country: FR (occurrence: FR)
  Receive Date: 20180504
  Receipt Date: 20180504
  Transmission Date: 20180711
  Serious: Yes (Other)
  Sender: FDA-Public Use
  Company Number: FR-MERCK KGAA-2047155

PATIENT
  Age: 70 Year
  Sex: Female

DRUGS (1)
  1. NOVOTHYROX [Suspect]
     Active Substance: LEVOTHYROXINE SODIUM
     Indication: PRODUCT USED FOR UNKNOWN INDICATION
     Dates: start: 20170601

REACTIONS (25)
  - Apathy [None]
  - Social avoidant behaviour [None]
  - Glycosylated haemoglobin increased [None]
  - Insomnia [None]
  - Anxiety [None]
  - Diarrhoea [None]
  - Suicidal ideation [None]
  - Fatigue [None]
  - Arthralgia [None]
  - Irritability [None]
  - Pain [None]
  - Sleep disorder [None]
  - Blood thyroid stimulating hormone increased [None]
  - Alopecia [None]
  - Night sweats [None]
  - Disturbance in attention [None]
  - Loss of personal independence in daily activities [None]
  - Mood altered [None]
  - Nervousness [None]
  - Weight increased [None]
  - Personal relationship issue [None]
  - Myalgia [None]
  - Gastrointestinal disorder [None]
  - Psychiatric symptom [None]
  - Loss of libido [None]

NARRATIVE: CASE EVENT DATE: 201706
